FAERS Safety Report 24086163 (Version 1)
Quarter: 2024Q3

REPORT INFORMATION
  Report Type: Other
  Country: US (occurrence: US)
  Receive Date: 20240712
  Receipt Date: 20240712
  Transmission Date: 20241016
  Serious: Yes (Hospitalization)
  Sender: SAPTALIS PHARMACEUTICALS
  Company Number: US-Saptalis Pharmaceuticals LLC-2159084

PATIENT
  Age: 72 Year
  Sex: Female

DRUGS (7)
  1. METFORMIN HYDROCHLORIDE [Suspect]
     Active Substance: METFORMIN HYDROCHLORIDE
  2. ALLOPURINOL [Concomitant]
     Active Substance: ALLOPURINOL
  3. VITAMIN D [Concomitant]
     Active Substance: VITAMIN D NOS
  4. OMEPRAZOLE [Concomitant]
     Active Substance: OMEPRAZOLE
  5. SIMVASTATIN [Concomitant]
     Active Substance: SIMVASTATIN
  6. METOPROLOL [Concomitant]
     Active Substance: METOPROLOL
  7. ASPIRIN [Concomitant]
     Active Substance: ASPIRIN

REACTIONS (3)
  - Dysarthria [Recovered/Resolved]
  - Blindness transient [Recovered/Resolved]
  - MELAS syndrome [Recovered/Resolved]
